FAERS Safety Report 8602176-9 (Version None)
Quarter: 2012Q3

REPORT INFORMATION
  Report Type: 
  Country: None (occurrence: None)
  Receive Date: 20120817
  Receipt Date: 20120809
  Transmission Date: 20120928
  Serious: Yes (Death, Other)
  Sender: FDA-Public Use
  Company Number: US-JNJFOC-20120806334

PATIENT
  Sex: Female

DRUGS (1)
  1. REMICADE [Suspect]
     Indication: PSORIATIC ARTHROPATHY
     Dosage: FREQUENCY: EVERY 6-8 WEEKS
     Route: 042

REACTIONS (3)
  - DEATH [None]
  - LYMPHOMA [None]
  - ASPERGILLOSIS [None]
